FAERS Safety Report 9583123 (Version 1)
Quarter: 2013Q4

REPORT INFORMATION
  Report Type: Spontaneous
  Country: US (occurrence: US)
  Receive Date: 20131002
  Receipt Date: 20131002
  Transmission Date: 20140711
  Serious: No
  Sender: FDA-Public Use
  Company Number: US-AMGEN-USASP2013045094

PATIENT
  Age: 55 Year
  Sex: Female
  Weight: 81.63 kg

DRUGS (16)
  1. ENBREL [Suspect]
     Indication: PRODUCT USED FOR UNKNOWN INDICATION
     Dosage: 50 MG, QWK
     Route: 058
  2. DYAZIDE [Concomitant]
     Dosage: 37.5-25, UNK, UNK
  3. PHENERGAN                          /00033001/ [Concomitant]
     Dosage: 25 MG, UNK
  4. METHOTREXATE [Concomitant]
     Dosage: 2.5 MG, UNK
  5. PREDNISONE [Concomitant]
     Dosage: 5 MG, UNK
  6. PATANOL [Concomitant]
     Dosage: SOLUTION, UNK
     Route: 047
  7. NEURONTIN [Concomitant]
     Dosage: 800 MG, UNK
  8. DILTIAZEM [Concomitant]
     Dosage: 180 MG, UNK ER
  9. FLONASE [Concomitant]
     Dosage: UNK SPRAY
  10. IMITREX                            /01044801/ [Concomitant]
     Dosage: 50 MG, UNK
  11. PRILOSEC                           /00661201/ [Concomitant]
     Dosage: 10 MG, UNK
  12. ALBUTEROL                          /00139501/ [Concomitant]
     Dosage: 4 MG, UNK
  13. PROZAC [Concomitant]
     Dosage: 20 MG, UNK
  14. ZANAFLEX [Concomitant]
     Dosage: 4 MG, UNK
  15. PROAIR HFA [Concomitant]
     Dosage: UNK  AEROSOL
  16. FOLIC ACID [Concomitant]
     Dosage: 20 MG, UNK

REACTIONS (8)
  - Contusion [Unknown]
  - Joint swelling [Unknown]
  - Dyspnoea [Unknown]
  - Blood pressure increased [Unknown]
  - Nausea [Unknown]
  - Headache [Unknown]
  - Migraine [Unknown]
  - Pain [Unknown]
